FAERS Safety Report 6093153-3 (Version None)
Quarter: 2009Q1

REPORT INFORMATION
  Report Type: 
  Country: None (occurrence: None)
  Receive Date: 20090226
  Receipt Date: 20090219
  Transmission Date: 20090719
  Serious: Yes (Disabling, Other)
  Sender: FDA-Public Use
  Company Number: GB-PFIZER INC-2008151447

PATIENT

DRUGS (2)
  1. CELECOXIB [Suspect]
     Indication: OSTEOARTHRITIS
     Dosage: 100 MG, 2X/DAY
     Route: 048
     Dates: start: 20081111
  2. COD-LIVER OIL [Concomitant]
     Indication: OSTEOARTHRITIS

REACTIONS (1)
  - RETINAL VEIN OCCLUSION [None]
